FAERS Safety Report 16863874 (Version 1)
Quarter: 2019Q3

REPORT INFORMATION
  Report Type: Spontaneous
  Country: US (occurrence: US)
  Receive Date: 20190927
  Receipt Date: 20190927
  Transmission Date: 20191005
  Serious: Yes (Other)
  Sender: FDA-Public Use
  Company Number: US-PFIZER INC-2016594604

PATIENT
  Age: 26 Year
  Sex: Male

DRUGS (2)
  1. XELJANZ [Suspect]
     Active Substance: TOFACITINIB CITRATE
     Indication: HIDRADENITIS
     Dosage: 5 MG, 2X/DAY
  2. TOFACITINIB [Suspect]
     Active Substance: TOFACITINIB
     Indication: HIDRADENITIS
     Dosage: UNK

REACTIONS (3)
  - Condition aggravated [Unknown]
  - Product use in unapproved indication [Unknown]
  - Off label use [Unknown]
